FAERS Safety Report 13994736 (Version 4)
Quarter: 2020Q2

REPORT INFORMATION
  Report Type: Spontaneous
  Country: TW (occurrence: TW)
  Receive Date: 20170921
  Receipt Date: 20200622
  Transmission Date: 20200713
  Serious: Yes (Death, Hospitalization, Other)
  Sender: FDA-Public Use
  Company Number: TW-BRISTOL-MYERS SQUIBB COMPANY-BMS-2017-083412

PATIENT
  Age: 66 Year
  Sex: Female
  Weight: 41 kg

DRUGS (1)
  1. OPDIVO [Suspect]
     Active Substance: NIVOLUMAB
     Indication: GASTRIC CANCER
     Dosage: 3 MG/KG, Q2WK
     Route: 042
     Dates: start: 20170906, end: 20170913

REACTIONS (9)
  - Vertigo [Unknown]
  - Intracranial pressure increased [Unknown]
  - Subdural haematoma [Unknown]
  - Intentional product use issue [Unknown]
  - Metastases to meninges [Unknown]
  - Otitis media acute [Unknown]
  - Metastases to bone [Unknown]
  - Malignant neoplasm progression [Fatal]
  - Thrombocytopenia [Unknown]

NARRATIVE: CASE EVENT DATE: 20170908
